FAERS Safety Report 6210030-5 (Version None)
Quarter: 2009Q2

REPORT INFORMATION
  Report Type: 
  Country: None (occurrence: None)
  Receive Date: 20090529
  Receipt Date: 20090529
  Transmission Date: 20091009
  Serious: Yes (Hospitalization)
  Sender: FDA-Public Use
  Company Number: None

PATIENT
  Sex: Male
  Weight: 88.8143 kg

DRUGS (10)
  1. BEVACIZUMAB [Suspect]
     Indication: OESOPHAGEAL ADENOCARCINOMA METASTATIC
     Dosage: 7.5MG/KG D1/22DAYCYCLE
     Dates: start: 20090520, end: 20090520
  2. OXALIPLATIN [Suspect]
     Indication: OESOPHAGEAL ADENOCARCINOMA METASTATIC
     Dosage: 75MG/M2
     Dates: start: 20090520, end: 20090520
  3. DOCETAXEL [Suspect]
     Indication: OESOPHAGEAL ADENOCARCINOMA METASTATIC
     Dosage: 55MG/M2 D1
  4. XANAX [Concomitant]
  5. REGLAN [Concomitant]
  6. METOPROLOL SUCCINATE [Concomitant]
  7. REMERON [Concomitant]
  8. DIOVAN [Concomitant]
  9. COMPAZINE [Concomitant]
  10. CREON [Concomitant]

REACTIONS (5)
  - COUGH [None]
  - DECREASED APPETITE [None]
  - FATIGUE [None]
  - FEBRILE NEUTROPENIA [None]
  - ORAL PAIN [None]
